FAERS Safety Report 24340869 (Version 3)
Quarter: 2024Q4

REPORT INFORMATION
  Report Type: Report from Study
  Country: US (occurrence: US)
  Receive Date: 20240919
  Receipt Date: 20241016
  Transmission Date: 20250114
  Serious: Yes (Hospitalization)
  Sender: SUNOVION
  Company Number: US-SUMITOMO PHARMA SWITZERLAND GMBH-2024SPA000523

PATIENT

DRUGS (3)
  1. ORGOVYX [Suspect]
     Active Substance: RELUGOLIX
     Indication: Prostate cancer
     Dosage: 360 MG
     Route: 048
     Dates: start: 20240711, end: 20240711
  2. ORGOVYX [Suspect]
     Active Substance: RELUGOLIX
     Indication: Bone cancer
     Dosage: 120 MG, QD
     Route: 048
     Dates: start: 20240712
  3. NUBEQA [Concomitant]
     Active Substance: DAROLUTAMIDE
     Dosage: UNK
     Route: 065

REACTIONS (8)
  - Hypoaesthesia [Unknown]
  - Blood potassium decreased [Unknown]
  - Blood sodium decreased [Unknown]
  - Blood magnesium decreased [Unknown]
  - Dehydration [Unknown]
  - Adverse drug reaction [Unknown]
  - Nausea [Unknown]
  - Off label use [Unknown]
